FAERS Safety Report 8504645-9 (Version None)
Quarter: 2012Q3

REPORT INFORMATION
  Report Type: 
  Country: None (occurrence: None)
  Receive Date: 20120711
  Receipt Date: 20110928
  Transmission Date: 20120928
  Serious: Yes (Death, Hospitalization)
  Sender: FDA-Public Use
  Company Number: US-ROCHE-1086702

PATIENT
  Sex: Female

DRUGS (2)
  1. ZELBORAF [Suspect]
     Indication: METASTASES TO LUNG
  2. ZELBORAF [Suspect]
     Indication: MALIGNANT MELANOMA
     Dosage: ROUTE, DOSE, FORM AND FREQUENCY: NOT REPORTED

REACTIONS (2)
  - HAEMATOCHEZIA [None]
  - DEATH [None]
